FAERS Safety Report 6454661-6 (Version None)
Quarter: 2009Q4

REPORT INFORMATION
  Report Type: 
  Country: None (occurrence: None)
  Receive Date: 20091118
  Receipt Date: 20091113
  Transmission Date: 20100525
  Serious: Yes (Death, Hospitalization, Other)
  Sender: FDA-Public Use
  Company Number: 2009SP035104

PATIENT
  Age: 72 Year
  Sex: Male
  Weight: 136.0337 kg

DRUGS (13)
  1. BETAMETHASONE [Suspect]
     Indication: NEUROPATHY PERIPHERAL
     Dosage: 50 MG; PRN; TOP
     Route: 061
     Dates: start: 20091016, end: 20091016
  2. FENTANYL [Suspect]
     Indication: NEUROPATHY PERIPHERAL
     Dosage: 50 MCG; TDER
     Route: 062
     Dates: start: 20091017, end: 20091020
  3. METOPROLOL [Suspect]
     Indication: BLOOD PRESSURE
     Dosage: 50 MG; BID;PO
     Route: 048
     Dates: start: 20090801, end: 20091019
  4. HYDROCODONE BITARTRATE + ACETAMINOPHEN [Suspect]
     Indication: PAIN
     Dosage: 6 DF; QD; PO
     Route: 048
     Dates: start: 20091017, end: 20091020
  5. AMBIEN [Suspect]
     Indication: INSOMNIA
     Dosage: 10 MG; PRN; PO
     Route: 048
     Dates: start: 20090101, end: 20091020
  6. AMMONIUM LACTATE [Suspect]
     Indication: NEUROPATHY PERIPHERAL
     Dosage: 400 MG; BID; TOP
     Route: 061
     Dates: start: 20091019, end: 20091019
  7. UROXATRAL [Suspect]
     Indication: MICTURITION DISORDER
     Dosage: 10 MG; QD; PO
     Route: 048
     Dates: start: 20090301, end: 20091019
  8. OXYCONTIN [Suspect]
     Indication: PAIN
     Dosage: 40 MG; PRN; PO
     Route: 048
     Dates: start: 20030101, end: 20091016
  9. NOVALAC [Suspect]
     Indication: DIABETES MELLITUS
     Dosage: 15 GM;TID; SC
     Route: 058
     Dates: start: 20070101, end: 20091019
  10. LANTUS [Suspect]
     Indication: DIABETES MELLITUS
     Dosage: 25 GM; QD; SC
     Route: 058
     Dates: start: 20070101, end: 20091019
  11. WARFARIN SODIUM [Suspect]
     Indication: DRUG USE FOR UNKNOWN INDICATION
     Dosage: 6 MG; QOD;PO)(7.5 MD;QOD; PO
     Route: 048
     Dates: start: 20060101, end: 20091019
  12. CYMBALTA [Suspect]
     Indication: FEELING OF RELAXATION
     Dosage: 60 MG; QD;
     Dates: end: 20091019
  13. DIPROLENT [Suspect]
     Dates: end: 20091019

REACTIONS (11)
  - ANEURYSM [None]
  - BRAIN DEATH [None]
  - COAGULOPATHY [None]
  - COLD SWEAT [None]
  - FALL [None]
  - FEELING ABNORMAL [None]
  - HAEMORRHAGIC STROKE [None]
  - HYPERTENSION [None]
  - INITIAL INSOMNIA [None]
  - MALAISE [None]
  - RESPIRATORY ARREST [None]
